FAERS Safety Report 8808104 (Version 2)
Quarter: 2012Q4

REPORT INFORMATION
  Report Type: Report from Study
  Country: JP (occurrence: JP)
  Receive Date: 20120925
  Receipt Date: 20121105
  Transmission Date: 20130627
  Serious: Yes (Death)
  Sender: FDA-Public Use
  Company Number: JP-EISAI INC-E3810-05896-CLI-JP

PATIENT
  Age: 78 Year
  Sex: Male
  Weight: 62 kg

DRUGS (10)
  1. E3810 (RABEPRAZOLE) [Suspect]
     Indication: PROPHYLAXIS AGAINST GASTROINTESTINAL ULCER
     Dosage: UNKNOWN
     Route: 048
     Dates: start: 20120228, end: 20120914
  2. WARFARIN [Suspect]
     Indication: ATRIAL FIBRILLATION
     Route: 048
     Dates: start: 20120308, end: 20120914
  3. BAYASPIRIN [Suspect]
     Indication: THROMBOEMBOLISM PROPHYLAXIS
     Route: 048
     Dates: start: 20030609, end: 20120914
  4. AMLODIN [Suspect]
     Indication: HYPERTENSION
     Route: 048
     Dates: start: 20051204, end: 20120914
  5. HALICION [Suspect]
     Indication: INSOMNIA
     Route: 048
     Dates: start: 20051127, end: 20120914
  6. CONSTAN [Suspect]
     Indication: NEUROSIS
     Route: 048
     Dates: end: 20120914
  7. DEXALTIN [Suspect]
     Indication: PROPHYLAXIS
     Dosage: UNKNOWN
     Route: 065
     Dates: start: 20111228, end: 20120914
  8. INTEBAN [Suspect]
     Indication: GONARTHROSIS
     Dosage: UNKNOWN
     Route: 065
     Dates: start: 20120604, end: 20120914
  9. HYDROCORTISONE\NEOMYCIN SULFATE [Suspect]
     Indication: INTERNAL HAEMORRHOIDS
     Dosage: UNKNOWN
     Route: 065
     Dates: start: 20120618, end: 20120914
  10. MYCOSPOR [Suspect]
     Indication: NAIL TINEA
     Dosage: UNKNOWN
     Route: 065
     Dates: start: 20120402, end: 20120914

REACTIONS (1)
  - Completed suicide [Fatal]
